FAERS Safety Report 17536460 (Version 1)
Quarter: 2020Q1

REPORT INFORMATION
  Report Type: Spontaneous
  Country: US (occurrence: US)
  Receive Date: 20200304
  Receipt Date: 20200304
  Transmission Date: 20200409
  Serious: Yes (Other)
  Sender: FDA-Public Use
  Company Number: None

PATIENT
  Age: 85 Year
  Sex: Female
  Weight: 71.21 kg

DRUGS (12)
  1. CITRACAL +D [Concomitant]
  2. VITAMIN C [Concomitant]
     Active Substance: ASCORBIC ACID
  3. VALSARTAN. [Concomitant]
     Active Substance: VALSARTAN
  4. CULTURELLE [Concomitant]
     Active Substance: LACTOBACILLUS RHAMNOSUS
  5. MAXI-HAIR [Concomitant]
  6. WARFARIN [Concomitant]
     Active Substance: WARFARIN
  7. POTASSIUM CHLORIDE. [Concomitant]
     Active Substance: POTASSIUM CHLORIDE
  8. PANTOPRAZOLE SODIUM. [Suspect]
     Active Substance: PANTOPRAZOLE SODIUM
     Indication: GASTROOESOPHAGEAL REFLUX DISEASE
     Dosage: ?          QUANTITY:1 DF DOSAGE FORM;?
     Route: 048
     Dates: start: 20200108, end: 20200110
  9. CLARITON [Concomitant]
     Active Substance: UNSPECIFIED INGREDIENT
  10. FUROSEMIDE. [Concomitant]
     Active Substance: FUROSEMIDE
  11. AMLODIPINE BESYLATE. [Concomitant]
     Active Substance: AMLODIPINE BESYLATE
  12. AREDS2 [Concomitant]

REACTIONS (5)
  - Feeling hot [None]
  - Pruritus [None]
  - Erythema [None]
  - Insomnia [None]
  - Product physical issue [None]
